FAERS Safety Report 7156457-9 (Version None)
Quarter: 2010Q4

REPORT INFORMATION
  Report Type: 
  Country: None (occurrence: None)
  Receive Date: 20101214
  Receipt Date: 20100105
  Transmission Date: 20110411
  Serious: No
  Sender: FDA-Public Use
  Company Number: US-ASTRAZENECA-2009SE26092

PATIENT
  Age: 69 Year
  Sex: Male
  Weight: 65.8 kg

DRUGS (1)
  1. CRESTOR [Suspect]
     Indication: BLOOD CHOLESTEROL INCREASED
     Route: 048
     Dates: start: 20091001

REACTIONS (2)
  - MUSCLE CONTRACTIONS INVOLUNTARY [None]
  - NASOPHARYNGITIS [None]
